FAERS Safety Report 11156215 (Version 2)
Quarter: 2015Q3

REPORT INFORMATION
  Report Type: Report from Study
  Country: US (occurrence: US)
  Receive Date: 20150602
  Receipt Date: 20150819
  Transmission Date: 20151125
  Serious: Yes (Other)
  Sender: FDA-Public Use
  Company Number: US-GILEAD-2015-0156098

PATIENT
  Age: 76 Year
  Sex: Female
  Weight: 67.21 kg

DRUGS (3)
  1. AMBRISENTAN [Suspect]
     Active Substance: AMBRISENTAN
     Indication: PULMONARY ARTERIAL HYPERTENSION
     Dosage: 10 MG, QD
     Route: 065
     Dates: start: 20121126
  2. PREDNISONE. [Suspect]
     Active Substance: PREDNISONE
     Indication: PRODUCT USED FOR UNKNOWN INDICATION
     Dosage: 10 MG, UNK
     Route: 065
     Dates: end: 2015
  3. PREDNISONE. [Suspect]
     Active Substance: PREDNISONE
     Dosage: 1 MG, UNK
     Route: 065
     Dates: start: 2015

REACTIONS (9)
  - Laceration [Unknown]
  - Arthralgia [Unknown]
  - Steroid withdrawal syndrome [Unknown]
  - Tremor [Unknown]
  - Weight decreased [Unknown]
  - Cellulitis [Unknown]
  - Back pain [Unknown]
  - Limb injury [Unknown]
  - Weight increased [Unknown]
